FAERS Safety Report 13509597 (Version 1)
Quarter: 2017Q2

REPORT INFORMATION
  Report Type: Spontaneous
  Country: US (occurrence: US)
  Receive Date: 20170503
  Receipt Date: 20170503
  Transmission Date: 20170830
  Serious: No
  Sender: FDA-Public Use
  Company Number: US-SA-2017SA024793

PATIENT
  Age: 66 Year
  Sex: Female

DRUGS (8)
  1. ALIROCUMAB PREFILLED PEN [Concomitant]
     Active Substance: ALIROCUMAB
     Indication: LOW DENSITY LIPOPROTEIN INCREASED
     Dates: start: 201608, end: 20170209
  2. ESTROGEN NOS [Concomitant]
     Active Substance: ESTROGENS
     Dosage: PATCH
  3. FENOFIBRATE. [Concomitant]
     Active Substance: FENOFIBRATE
  4. PLAVIX [Concomitant]
     Active Substance: CLOPIDOGREL BISULFATE
  5. PROZAC [Concomitant]
     Active Substance: FLUOXETINE HYDROCHLORIDE
  6. PRALUENT [Suspect]
     Active Substance: ALIROCUMAB
     Indication: LOW DENSITY LIPOPROTEIN INCREASED
     Route: 065
     Dates: start: 201608, end: 20170209
  7. VALSARTAN. [Concomitant]
     Active Substance: VALSARTAN
  8. NITROGLYCERIN. [Concomitant]
     Active Substance: NITROGLYCERIN

REACTIONS (5)
  - Pruritus [Unknown]
  - Erythema [Unknown]
  - Muscle spasms [Unknown]
  - Blood pressure increased [Unknown]
  - Restless legs syndrome [Unknown]
